FAERS Safety Report 9023563 (Version 1)
Quarter: 2013Q1

REPORT INFORMATION
  Report Type: Spontaneous
  Country: US (occurrence: US)
  Receive Date: 20130121
  Receipt Date: 20130121
  Transmission Date: 20140127
  Serious: Yes (Other)
  Sender: FDA-Public Use
  Company Number: PHEH2012US024778

PATIENT
  Age: 47 None
  Sex: Female
  Weight: 86.62 kg

DRUGS (18)
  1. GILENYA [Suspect]
     Indication: MULTIPLE SCLEROSIS
     Dosage: 0.5 MG, QD
     Route: 048
     Dates: start: 20121203, end: 20121227
  2. ADVIL COLD [Concomitant]
  3. VITAMIN B12 [Concomitant]
  4. BACLOFEN [Concomitant]
  5. DANTRIUM [Concomitant]
  6. IMITREX//SUMATRIPTAN [Concomitant]
  7. NAPROXEN [Concomitant]
  8. PHENERGAN /00404701/ [Concomitant]
  9. RESTORIL [Concomitant]
  10. SYNTHROID [Concomitant]
  11. TOPIRAMATE [Concomitant]
  12. TYLENOL [Concomitant]
  13. TAMSULOSIN [Concomitant]
  14. ULTRAM [Concomitant]
  15. VIT D3 [Concomitant]
  16. ZOFRAN [Concomitant]
  17. EXCEDRIN [Concomitant]
  18. VIMPAT [Concomitant]

REACTIONS (4)
  - Wheezing [Recovered/Resolved]
  - Dyspnoea [Recovered/Resolved]
  - Cough [Recovered/Resolved]
  - Fatigue [Not Recovered/Not Resolved]
